FAERS Safety Report 13384976 (Version 1)
Quarter: 2017Q1

REPORT INFORMATION
  Report Type: Spontaneous
  Country: CA (occurrence: CA)
  Receive Date: 20170329
  Receipt Date: 20170329
  Transmission Date: 20170429
  Serious: Yes (Hospitalization)
  Sender: FDA-Public Use
  Company Number: CA-ALSI-201700095

PATIENT
  Age: 55 Year
  Sex: Male

DRUGS (1)
  1. MEDICAL OXYGEN [Suspect]
     Active Substance: OXYGEN
     Indication: PRODUCT USED FOR UNKNOWN INDICATION
     Route: 055
     Dates: start: 20160607, end: 20160607

REACTIONS (2)
  - Intentional product misuse [Not Recovered/Not Resolved]
  - Thermal burn [Not Recovered/Not Resolved]
